FAERS Safety Report 12119389 (Version 2)
Quarter: 2016Q1

REPORT INFORMATION
  Report Type: Spontaneous
  Country: US (occurrence: US)
  Receive Date: 20160226
  Receipt Date: 20160323
  Transmission Date: 20160526
  Serious: Yes (Hospitalization)
  Sender: FDA-Public Use
  Company Number: US-LUNDBECK-DKLU2010165

PATIENT
  Sex: Male
  Weight: 63 kg

DRUGS (2)
  1. NORTHERA [Suspect]
     Active Substance: DROXIDOPA
     Indication: ORTHOSTATIC HYPOTENSION
     Route: 065
     Dates: start: 20160202, end: 201602
  2. NORTHERA [Suspect]
     Active Substance: DROXIDOPA
     Indication: FALL
     Route: 065

REACTIONS (3)
  - Fall [Unknown]
  - Blood pressure increased [Unknown]
  - Drug intolerance [Unknown]
